FAERS Safety Report 17246922 (Version 1)
Quarter: 2020Q1

REPORT INFORMATION
  Report Type: Spontaneous
  Country: US (occurrence: US)
  Receive Date: 20200108
  Receipt Date: 20200108
  Transmission Date: 20200409
  Serious: No
  Sender: FDA-Public Use
  Company Number: US-PFIZER INC-2020003420

PATIENT
  Sex: Female

DRUGS (1)
  1. LIPITOR [Suspect]
     Active Substance: ATORVASTATIN CALCIUM
     Dosage: UNK

REACTIONS (7)
  - Fatigue [Unknown]
  - Asthenia [Recovered/Resolved]
  - Somnolence [Unknown]
  - Insomnia [Recovered/Resolved]
  - Feeling abnormal [Unknown]
  - Memory impairment [Unknown]
  - Pain in extremity [Recovering/Resolving]
